FAERS Safety Report 24303491 (Version 1)
Quarter: 2024Q3

REPORT INFORMATION
  Report Type: Spontaneous
  Country: US (occurrence: US)
  Receive Date: 20240910
  Receipt Date: 20240910
  Transmission Date: 20241017
  Serious: No
  Sender: RECKITT BENCKISER
  Company Number: US-PROD-AS2-212756134-RB-133899-2023

PATIENT
  Age: 81 Year
  Sex: Female

DRUGS (3)
  1. MUCINEX [Suspect]
     Active Substance: GUAIFENESIN
     Indication: Hypersensitivity
     Dosage: 600 MG, QD
     Route: 048
  2. MUCINEX [Suspect]
     Active Substance: GUAIFENESIN
     Indication: Secretion discharge
  3. MUCINEX [Suspect]
     Active Substance: GUAIFENESIN
     Indication: Sinus disorder

REACTIONS (2)
  - Product use issue [Unknown]
  - Product use in unapproved indication [Unknown]
